FAERS Safety Report 7824513-5 (Version None)
Quarter: 2011Q4

REPORT INFORMATION
  Report Type: 
  Country: None (occurrence: None)
  Receive Date: 20111019
  Receipt Date: 20111005
  Transmission Date: 20120403
  Serious: Yes (Hospitalization)
  Sender: FDA-Public Use
  Company Number: AU-CELGENEUS-008-21660-11100495

PATIENT
  Sex: Female
  Weight: 65 kg

DRUGS (7)
  1. DOMPERIDONE [Concomitant]
     Indication: NAUSEA
     Route: 065
     Dates: start: 20110601
  2. RABEPRAZOLE SODIUM [Concomitant]
     Route: 048
  3. TRASTUZUMAB [Suspect]
     Route: 065
     Dates: start: 20110501
  4. MAGMIN [Suspect]
     Indication: HYPOMAGNESAEMIA
     Route: 065
     Dates: start: 20110601
  5. ABRAXANE [Suspect]
     Dosage: 110 MILLIGRAM
     Route: 050
     Dates: start: 20110728, end: 20110921
  6. ZOLEDRONIC ACID [Concomitant]
     Indication: HYPERCALCAEMIA
     Route: 065
     Dates: start: 20110201
  7. HYDROMORPHONE HCL [Concomitant]
     Indication: BONE PAIN
     Dosage: 16 MILLIGRAM
     Route: 065
     Dates: start: 20110401, end: 20110901

REACTIONS (2)
  - HYPOKALAEMIA [None]
  - HYPOPHOSPHATAEMIA [None]
